FAERS Safety Report 8956240 (Version 1)
Quarter: 2012Q4

REPORT INFORMATION
  Report Type: Report from Study
  Country: IT (occurrence: IT)
  Receive Date: 20121210
  Receipt Date: 20121210
  Transmission Date: 20130627
  Serious: Yes (Other)
  Sender: FDA-Public Use
  Company Number: IT-JNJFOC-20121201882

PATIENT
  Sex: Female
  Weight: 80 kg

DRUGS (1)
  1. REMICADE [Suspect]
     Indication: RHEUMATOID ARTHRITIS
     Dosage: dose: 3-3.99 mg/kg
     Route: 042
     Dates: start: 201202

REACTIONS (4)
  - Necrosis [Unknown]
  - Induration [Unknown]
  - Pain [Unknown]
  - Erythema [Unknown]
